FAERS Safety Report 6917360-X (Version None)
Quarter: 2010Q3

REPORT INFORMATION
  Report Type: 
  Country: None (occurrence: None)
  Receive Date: 20100805
  Receipt Date: 20100729
  Transmission Date: 20110219
  Serious: Yes (Hospitalization)
  Sender: FDA-Public Use
  Company Number: UTC-001212

PATIENT
  Age: 27 Year
  Sex: Female
  Weight: 113.4 kg

DRUGS (3)
  1. REMODULIN [Suspect]
     Dosage: SUBCUTANEOUS
     Route: 058
     Dates: start: 20010901
  2. TRACLEER [Concomitant]
  3. REVATIO [Concomitant]

REACTIONS (5)
  - CARDIAC FAILURE CONGESTIVE [None]
  - CONJUNCTIVITIS [None]
  - FATIGUE [None]
  - PNEUMONIA BACTERIAL [None]
  - PULMONARY THROMBOSIS [None]
